FAERS Safety Report 8399441-X (Version None)
Quarter: 2012Q1

REPORT INFORMATION
  Report Type: 
  Country: None (occurrence: None)
  Receive Date: 20120323
  Receipt Date: 20110411
  Transmission Date: 20120608
  Serious: Yes (Hospitalization, Disabling, Other)
  Sender: FDA-Public Use
  Company Number: 163-21880-11012453

PATIENT
  Age: 66 Year
  Sex: Male
  Weight: 103.8737 kg

DRUGS (19)
  1. DECADRON [Concomitant]
  2. BACTRIM DS [Concomitant]
  3. COMPAZINE [Concomitant]
  4. REVLIMID [Suspect]
     Indication: MULTIPLE MYELOMA
     Dosage: 25 MG, 1 IN 1 D, PO ; 15 MG, DAILY FOR 21 DAYS, PO
     Route: 048
     Dates: start: 20100901
  5. REVLIMID [Suspect]
     Indication: MULTIPLE MYELOMA
     Dosage: 25 MG, 1 IN 1 D, PO ; 15 MG, DAILY FOR 21 DAYS, PO
     Route: 048
     Dates: start: 20110101
  6. GLYBURIDE [Concomitant]
  7. NEXIUM [Concomitant]
  8. LEVAQUIN [Concomitant]
  9. AMBIEN [Concomitant]
  10. HYDROCODONE-ACETAMINOPHEN (PROCET /USA/) [Concomitant]
  11. ENABLEX [Concomitant]
  12. POTASSIUM CHLORIDE [Concomitant]
  13. MEGESTROL ACETATE [Concomitant]
  14. PACKE RED BLOOD CELS (RED BLOOD CELLS, CONCENTRATED) [Concomitant]
  15. ZOMETA [Concomitant]
  16. FLOMAX [Concomitant]
  17. DIFLUCAN [Concomitant]
  18. PHENERGAN [Concomitant]
  19. SINGULAIR [Concomitant]

REACTIONS (6)
  - RENAL FAILURE ACUTE [None]
  - DEEP VEIN THROMBOSIS [None]
  - BONE MARROW FAILURE [None]
  - PANCYTOPENIA [None]
  - NEUTROPENIA [None]
  - PULMONARY EMBOLISM [None]
